FAERS Safety Report 15575714 (Version 5)
Quarter: 2019Q3

REPORT INFORMATION
  Report Type: Spontaneous
  Country: US (occurrence: US)
  Receive Date: 20181101
  Receipt Date: 20190731
  Transmission Date: 20191004
  Serious: Yes (Hospitalization, Other)
  Sender: FDA-Public Use
  Company Number: US-MALLINCKRODT-T201804667

PATIENT
  Age: 39 Year
  Sex: Female

DRUGS (2)
  1. H.P. ACTHAR [Suspect]
     Active Substance: CORTICOTROPIN
     Indication: SYSTEMIC LUPUS ERYTHEMATOSUS
     Dosage: 80 UNITS/1ML, THREE TIMES A WEEK, AS DIRECTED
     Route: 058
     Dates: start: 201702
  2. H.P. ACTHAR [Suspect]
     Active Substance: CORTICOTROPIN
     Dosage: 80 UNITS/1ML, THREE TIMES A WEEK, AS DIRECTED
     Route: 058
     Dates: start: 201802

REACTIONS (18)
  - Haematuria [Unknown]
  - Arthropod bite [Unknown]
  - Blood potassium decreased [Unknown]
  - Staphylococcal infection [Unknown]
  - Abdominal sepsis [Unknown]
  - Dyspnoea [Unknown]
  - Escherichia infection [Unknown]
  - Fungal infection [Unknown]
  - Movement disorder [Unknown]
  - Fall [Unknown]
  - Constipation [Unknown]
  - Muscle twitching [Unknown]
  - Pleural effusion [Unknown]
  - Urinary tract infection [Unknown]
  - Migraine [Unknown]
  - Diarrhoea [Unknown]
  - Pyrexia [Unknown]
  - Therapeutic product effect decreased [Unknown]

NARRATIVE: CASE EVENT DATE: 201811
